FAERS Safety Report 4472381-4 (Version None)
Quarter: 2004Q4

REPORT INFORMATION
  Report Type: 
  Country: None (occurrence: None)
  Receive Date: 20041007
  Receipt Date: 20040928
  Transmission Date: 20050328
  Serious: Yes (Other)
  Sender: FDA-Public Use
  Company Number: 2004236164US

PATIENT
  Sex: Female
  Weight: 53.5 kg

DRUGS (2)
  1. DEPO-PROVERA [Suspect]
     Dosage: 150 MG, FIRST INJECTION, INTRAMUSCULAR; 150 MG, MOST RECENT INJECTION, INTRAMUSCULAR
     Route: 030
     Dates: start: 20021002, end: 20021002
  2. DEPO-PROVERA [Suspect]
     Dosage: 150 MG, FIRST INJECTION, INTRAMUSCULAR; 150 MG, MOST RECENT INJECTION, INTRAMUSCULAR
     Route: 030
     Dates: start: 20040928, end: 20040928

REACTIONS (2)
  - HYPOAESTHESIA [None]
  - SPEECH DISORDER [None]
